FAERS Safety Report 12068971 (Version 1)
Quarter: 2016Q1

REPORT INFORMATION
  Report Type: Spontaneous
  Country: FR (occurrence: FR)
  Receive Date: 20160211
  Receipt Date: 20160211
  Transmission Date: 20160526
  Serious: Yes (Death)
  Sender: FDA-Public Use
  Company Number: FR-PFIZER INC-2016072116

PATIENT
  Age: 67 Year
  Sex: Female

DRUGS (2)
  1. AMBISOME [Suspect]
     Active Substance: AMPHOTERICIN B
     Indication: FUSARIUM INFECTION
  2. VFEND [Suspect]
     Active Substance: VORICONAZOLE
     Indication: FUSARIUM INFECTION

REACTIONS (1)
  - Drug resistance [Fatal]
